FAERS Safety Report 6304324-2 (Version None)
Quarter: 2009Q3

REPORT INFORMATION
  Report Type: 
  Country: None (occurrence: None)
  Receive Date: 20090811
  Receipt Date: 20090806
  Transmission Date: 20100115
  Serious: Yes (Hospitalization)
  Sender: FDA-Public Use
  Company Number: JP-SP-2009-03199

PATIENT
  Age: 77 Year
  Sex: Male

DRUGS (2)
  1. IMMUCYST [Suspect]
     Indication: MALIGNANT NEOPLASM OF RENAL PELVIS
     Route: 050
     Dates: start: 20090717, end: 20090717
  2. IMMUCYST [Suspect]
     Route: 050
     Dates: start: 20090717, end: 20090717

REACTIONS (10)
  - ANURIA [None]
  - BOVINE TUBERCULOSIS [None]
  - HYPOTENSION [None]
  - LIVER FUNCTION TEST ABNORMAL [None]
  - OFF LABEL USE [None]
  - PYELONEPHRITIS [None]
  - PYREXIA [None]
  - RENAL IMPAIRMENT [None]
  - SHOCK [None]
  - URINE OUTPUT DECREASED [None]
